FAERS Safety Report 22890591 (Version 2)
Quarter: 2023Q4

REPORT INFORMATION
  Report Type: Report from Study
  Country: US (occurrence: US)
  Receive Date: 20230901
  Receipt Date: 20231026
  Transmission Date: 20240109
  Serious: No
  Sender: FDA-Public Use
  Company Number: US-ACADIA PHARMACEUTICALS INC.-ACA-2023-TRF-003406

PATIENT
  Age: 29 Year
  Sex: Female

DRUGS (13)
  1. DAYBUE [Suspect]
     Active Substance: TROFINETIDE
     Indication: Rett syndrome
     Dosage: 10 MILLILITER, FIRST WEEK
     Dates: start: 202307
  2. DAYBUE [Suspect]
     Active Substance: TROFINETIDE
     Dosage: 15 MILLILITER, SECOND WEEK
  3. DAYBUE [Suspect]
     Active Substance: TROFINETIDE
     Dosage: 20 MILLILITER, THIRD WEEK AND FOURTH WEEK
  4. DAYBUE [Suspect]
     Active Substance: TROFINETIDE
     Dosage: 5 MILLILITER, BID, G-TUBE
     Dates: start: 20230826, end: 20230826
  5. LINZESS [Concomitant]
     Active Substance: LINACLOTIDE
     Dosage: UNK
     Dates: start: 202307
  6. TIZANIDINE [Concomitant]
     Active Substance: TIZANIDINE
     Dosage: UNK
     Dates: start: 202307
  7. BACLOFEN [Concomitant]
     Active Substance: BACLOFEN
  8. ROBINUL [Concomitant]
     Active Substance: GLYCOPYRROLATE
  9. VALPROIC ACID [Concomitant]
     Active Substance: VALPROIC ACID
  10. LAMICTAL [Concomitant]
     Active Substance: LAMOTRIGINE
  11. BUSPAR [Concomitant]
     Active Substance: BUSPIRONE HYDROCHLORIDE
  12. PROLIA [Concomitant]
     Active Substance: DENOSUMAB
  13. ATIVAN [Concomitant]
     Active Substance: LORAZEPAM

REACTIONS (6)
  - Vomiting projectile [Recovered/Resolved]
  - Underdose [Recovered/Resolved]
  - Hypophagia [Recovered/Resolved]
  - Retching [Recovered/Resolved]
  - Diarrhoea [Recovered/Resolved]
  - Vomiting [Recovered/Resolved]

NARRATIVE: CASE EVENT DATE: 20230730
